FAERS Safety Report 22145976 (Version 9)
Quarter: 2023Q4

REPORT INFORMATION
  Report Type: Spontaneous
  Country: US (occurrence: US)
  Receive Date: 20230328
  Receipt Date: 20231013
  Transmission Date: 20240110
  Serious: Yes (Other)
  Sender: FDA-Public Use
  Company Number: US-PFIZER INC-202300124951

PATIENT
  Age: 13 Year
  Sex: Male

DRUGS (1)
  1. GENOTROPIN [Suspect]
     Active Substance: SOMATROPIN
     Dosage: 2.4 MG, DAILY
     Dates: start: 2023

REACTIONS (7)
  - Incorrect dose administered by device [Unknown]
  - Rash [Recovered/Resolved]
  - Device difficult to use [Unknown]
  - Device mechanical issue [Unknown]
  - Device leakage [Unknown]
  - Device leakage [Unknown]
  - Drug dose omission by device [Unknown]
